FAERS Safety Report 18081372 (Version 1)
Quarter: 2020Q3

REPORT INFORMATION
  Report Type: Spontaneous
  Country: RO (occurrence: RO)
  Receive Date: 20200728
  Receipt Date: 20200728
  Transmission Date: 20201103
  Serious: Yes (Hospitalization)
  Sender: FDA-Public Use
  Company Number: RO-ASTRAZENECA-2020SE93070

PATIENT
  Age: 68 Year
  Sex: Female

DRUGS (2)
  1. GRANISETRON [Concomitant]
     Active Substance: GRANISETRON
     Dosage: 2 MG/ DAY
  2. OLAPARIB. [Suspect]
     Active Substance: OLAPARIB
     Dosage: 800 MG
     Route: 048
     Dates: start: 20190828, end: 20200429

REACTIONS (1)
  - Bone marrow failure [Recovering/Resolving]

NARRATIVE: CASE EVENT DATE: 20200429
